FAERS Safety Report 22283608 (Version 1)
Quarter: 2023Q2

REPORT INFORMATION
  Report Type: Spontaneous
  Country: US (occurrence: None)
  Receive Date: 20230503
  Receipt Date: 20230503
  Transmission Date: 20230721
  Serious: Yes (Hospitalization)
  Sender: FDA-Public Use
  Company Number: None

PATIENT
  Age: 31 Year
  Sex: Female
  Weight: 69.4 kg

DRUGS (1)
  1. XYLAZINE [Suspect]
     Active Substance: XYLAZINE
     Route: 042

REACTIONS (3)
  - Skin ulcer [None]
  - Cellulitis [None]
  - Intentional product misuse [None]

NARRATIVE: CASE EVENT DATE: 20230502
